FAERS Safety Report 25477422 (Version 1)
Quarter: 2025Q2

REPORT INFORMATION
  Report Type: Spontaneous
  Country: US (occurrence: US)
  Receive Date: 20250625
  Receipt Date: 20250625
  Transmission Date: 20250716
  Serious: No
  Sender: ALCON
  Company Number: US-ALCON LABORATORIES-ALC2024US004222

PATIENT
  Age: 80 Year
  Sex: Female

DRUGS (2)
  1. PATADAY [Suspect]
     Active Substance: OLOPATADINE HYDROCHLORIDE
     Indication: Eye allergy
     Route: 047
  2. SYSTANE ULTRA [Suspect]
     Active Substance: POLYETHYLENE GLYCOL 400\PROPYLENE GLYCOL
     Indication: Eye allergy
     Route: 047

REACTIONS (2)
  - Visual impairment [Recovered/Resolved]
  - Eye irritation [Recovered/Resolved]
